FAERS Safety Report 4364106-8 (Version None)
Quarter: 2004Q2

REPORT INFORMATION
  Report Type: 
  Country: None (occurrence: None)
  Receive Date: 20040519
  Receipt Date: 20040507
  Transmission Date: 20050107
  Serious: Yes (Hospitalization)
  Sender: FDA-Public Use
  Company Number: US-JNJFOC-20040501699

PATIENT
  Age: 57 Year
  Sex: Female
  Weight: 71.6683 kg

DRUGS (3)
  1. TOPAMAX [Suspect]
     Indication: MOOD SWINGS
     Dosage: ORAL
     Route: 048
  2. EFFEXOR [Suspect]
  3. SEROQUEL [Suspect]

REACTIONS (3)
  - HALLUCINATIONS, MIXED [None]
  - INSOMNIA [None]
  - OVERDOSE [None]
